FAERS Safety Report 5923846-7 (Version None)
Quarter: 2008Q4

REPORT INFORMATION
  Report Type: 
  Country: None (occurrence: None)
  Receive Date: 20081020
  Receipt Date: 20081009
  Transmission Date: 20090506
  Serious: No
  Sender: FDA-Public Use
  Company Number: CA-AVENTIS-200819748GDDC

PATIENT
  Age: 40 Year
  Sex: Female

DRUGS (1)
  1. ARAVA [Suspect]
     Indication: RHEUMATOID ARTHRITIS
     Dosage: DOSE: UNK
     Route: 048
     Dates: start: 20080401, end: 20080505

REACTIONS (2)
  - DRUG EXPOSURE DURING PREGNANCY [None]
  - NAUSEA [None]
